FAERS Safety Report 5036456-3 (Version None)
Quarter: 2006Q2

REPORT INFORMATION
  Report Type: 
  Country: None (occurrence: None)
  Receive Date: 20060626
  Receipt Date: 20060612
  Transmission Date: 20061013
  Serious: Yes (Hospitalization)
  Sender: FDA-Public Use
  Company Number: S06-UKI-02566-01

PATIENT
  Sex: Female

DRUGS (5)
  1. CIPRAMIL (CITALO0PRAM HYDROBROMIDE) [Suspect]
     Indication: DEPRESSION
     Dosage: 20 MG QD PO
     Route: 048
     Dates: start: 20060508, end: 20060510
  2. BENDROFLUMETHIAZIDE [Suspect]
     Indication: HYPERTENSION
     Dosage: 2.5 MG QD PO
     Route: 048
     Dates: start: 20060424, end: 20060510
  3. CO-DYDRAMOL [Concomitant]
  4. LEVOTHYROXINE SODIUM [Concomitant]
  5. ZOPICLONE [Concomitant]

REACTIONS (4)
  - HYPOKALAEMIA [None]
  - HYPONATRAEMIA [None]
  - NAUSEA [None]
  - VOMITING [None]
